FAERS Safety Report 8821726 (Version 1)
Quarter: 2012Q4

REPORT INFORMATION
  Report Type: 
  Country: US (occurrence: US)
  Receive Date: 20121002
  Receipt Date: 20121002
  Transmission Date: 20130627
  Serious: No
  Sender: FDA-Public Use
  Company Number: US-VERTEX PHARMACEUTICAL INC.-2012-020801

PATIENT

DRUGS (7)
  1. VX-950 [Suspect]
     Indication: HEPATITIS C
     Dosage: 750 mg, tid
     Route: 048
  2. PEGASYS [Concomitant]
     Indication: HEPATITIS C
     Dosage: 180 ?g, UNK
     Route: 058
  3. RIBASPHERE [Concomitant]
     Indication: HEPATITIS C
     Dosage: 600 mg, bid
     Route: 048
  4. KLONOPIN [Concomitant]
     Dosage: 0.5 mg, qd
     Route: 048
  5. ZOLOFT [Concomitant]
     Dosage: 25 mg, qd
     Route: 048
  6. ZOFRAN                             /00955301/ [Concomitant]
     Dosage: 4 mg, prn
     Route: 048
  7. FLEXERIL                           /00428402/ [Concomitant]

REACTIONS (1)
  - Rash vesicular [Unknown]
